FAERS Safety Report 25806997 (Version 1)
Quarter: 2025Q3

REPORT INFORMATION
  Report Type: Spontaneous
  Country: EU (occurrence: EU)
  Receive Date: 20250916
  Receipt Date: 20250916
  Transmission Date: 20251020
  Serious: Yes (Congenital Anomaly)
  Sender: Kenvue
  Company Number: EU-EMB-M202405059-1

PATIENT

DRUGS (9)
  1. IBUPROFEN [Suspect]
     Active Substance: IBUPROFEN
     Indication: Migraine
     Route: 064
     Dates: start: 202212, end: 202304
  2. RIZATRIPTAN [Suspect]
     Active Substance: RIZATRIPTAN
     Indication: Migraine
     Route: 064
     Dates: start: 202211, end: 202308
  3. SUMATRIPTAN [Suspect]
     Active Substance: SUMATRIPTAN
     Indication: Migraine
     Route: 064
     Dates: start: 202301, end: 202307
  4. DIMENHYDRINATE [Suspect]
     Active Substance: DIMENHYDRINATE
     Indication: Migraine
     Route: 064
     Dates: start: 202301, end: 202307
  5. ACETAMINOPHEN [Concomitant]
     Active Substance: ACETAMINOPHEN
     Indication: Migraine
     Route: 064
     Dates: start: 202306, end: 202307
  6. XYLOMETAZOLINE HYDROCHLORIDE [Concomitant]
     Active Substance: XYLOMETAZOLINE HYDROCHLORIDE
     Indication: Acute sinusitis
     Route: 064
  7. LEVOTHYROXINE SODIUM\POTASSIUM IODIDE [Concomitant]
     Active Substance: LEVOTHYROXINE SODIUM\POTASSIUM IODIDE
     Indication: Hypothyroidism
     Dosage: UNK UNK, ONCE A DAY
     Route: 064
     Dates: start: 202210, end: 202308
  8. DIETARY SUPPLEMENT\HERBALS [Concomitant]
     Active Substance: DIETARY SUPPLEMENT\HERBALS
     Indication: Acute sinusitis
     Route: 064
  9. FOLIC ACID [Concomitant]
     Active Substance: FOLIC ACID
     Indication: Prophylaxis of neural tube defect
     Route: 064

REACTIONS (2)
  - Mastocytosis [Not Recovered/Not Resolved]
  - Foetal exposure during pregnancy [Unknown]
